FAERS Safety Report 18445343 (Version 2)
Quarter: 2021Q1

REPORT INFORMATION
  Report Type: Report from Study
  Country: CO (occurrence: CO)
  Receive Date: 20201030
  Receipt Date: 20210114
  Transmission Date: 20210419
  Serious: Yes (Other)
  Sender: FDA-Public Use
  Company Number: NVSC2020CO267335

PATIENT
  Age: 48 Year
  Sex: Male
  Weight: 98 kg

DRUGS (7)
  1. AMLODIPINE [Concomitant]
     Active Substance: AMLODIPINE BESYLATE
     Indication: HYPERTENSION
     Dosage: UNK UNK, Q12H (9 YEARS AGO APPROXIMATELY)
     Route: 048
  2. COSENTYX [Suspect]
     Active Substance: SECUKINUMAB
     Dosage: 150 MG, QW (5TH DOSE)
     Route: 058
     Dates: start: 20201002
  3. COSENTYX [Suspect]
     Active Substance: SECUKINUMAB
     Indication: FIBROMYALGIA
     Dosage: 150 MG, QW (4TH DOSE)
     Route: 058
     Dates: start: 20200925
  4. HYDROCHLOROTHIAZIDE. [Concomitant]
     Active Substance: HYDROCHLOROTHIAZIDE
     Indication: HYPERTENSION
     Dosage: UNK UNK, Q12H (9 YEARS AGO APPROXIMATELY)
     Route: 048
  5. LOSARTAN. [Suspect]
     Active Substance: LOSARTAN
     Indication: HYPERTENSION
     Dosage: 50 MG, Q12H (9 YEARS AGO APPROX.)
     Route: 065
  6. COSENTYX [Suspect]
     Active Substance: SECUKINUMAB
     Indication: ANKYLOSING SPONDYLITIS
     Dosage: 150 MG
     Route: 058
     Dates: start: 20200904
  7. METOPROLOL. [Suspect]
     Active Substance: METOPROLOL
     Indication: HYPERTENSION
     Dosage: UNK UNK, Q12H (9 YEARS AGO APPROXIMATELY)
     Route: 048

REACTIONS (6)
  - Malaise [Recovering/Resolving]
  - Diarrhoea [Recovered/Resolved]
  - Off label use [Unknown]
  - Arrhythmia [Recovered/Resolved]
  - Headache [Recovering/Resolving]
  - Inappropriate schedule of product administration [Unknown]

NARRATIVE: CASE EVENT DATE: 20200904
